FAERS Safety Report 18394552 (Version 1)
Quarter: 2020Q4

REPORT INFORMATION
  Report Type: Spontaneous
  Country: PL (occurrence: PL)
  Receive Date: 20201017
  Receipt Date: 20201017
  Transmission Date: 20210114
  Serious: Yes (Other)
  Sender: FDA-Public Use
  Company Number: NVSC2020PL275250

PATIENT
  Age: 23 Year
  Weight: 70 kg

DRUGS (5)
  1. AMOKSIKLAV [Suspect]
     Active Substance: AMOXICILLIN\CLAVULANATE POTASSIUM
     Indication: NASAL SEPTUM DEVIATION
     Dosage: 1.2 G
     Route: 042
     Dates: start: 20180404, end: 20180404
  2. PYRALGIN [Concomitant]
     Indication: NASAL SEPTUM DEVIATION
     Dosage: 1 G, Q8H
     Route: 042
     Dates: start: 20180403, end: 20180406
  3. PARACETAMOL [Concomitant]
     Active Substance: ACETAMINOPHEN
     Indication: NASAL SEPTUM DEVIATION
     Dosage: 1 G, Q6H
     Route: 042
     Dates: start: 20180403, end: 20180406
  4. EXACYL [Concomitant]
     Active Substance: TRANEXAMIC ACID
     Indication: NASAL SEPTUM DEVIATION
     Dosage: 500 MG, Q12H
     Route: 042
     Dates: start: 20180403, end: 20180406
  5. DIH [Concomitant]
     Indication: NASAL SEPTUM DEVIATION
     Dosage: 500 MG, Q12H
     Route: 048
     Dates: start: 20180403, end: 20180406

REACTIONS (4)
  - Erythema [Recovered/Resolved]
  - Dyspnoea [Recovered/Resolved]
  - Feeling hot [Recovered/Resolved]
  - Chest discomfort [Recovered/Resolved]

NARRATIVE: CASE EVENT DATE: 20180404
